FAERS Safety Report 7117628-0 (Version None)
Quarter: 2010Q4

REPORT INFORMATION
  Report Type: 
  Country: None (occurrence: None)
  Receive Date: 20101122
  Receipt Date: 20101110
  Transmission Date: 20110411
  Serious: Yes (Hospitalization)
  Sender: FDA-Public Use
  Company Number: US-MYLANLABS-2010S1021035

PATIENT
  Age: 15 Year
  Sex: Male
  Weight: 72 kg

DRUGS (3)
  1. GUANFACINE [Suspect]
     Indication: OVERDOSE
     Dosage: INGESTED 70 X 5MG
     Route: 048
  2. GUANFACINE [Suspect]
     Route: 048
  3. CONCERTA [Concomitant]
     Route: 065

REACTIONS (2)
  - HYPERTENSIVE EMERGENCY [None]
  - OVERDOSE [None]
